FAERS Safety Report 5445117-8 (Version None)
Quarter: 2007Q3

REPORT INFORMATION
  Report Type: 
  Country: None (occurrence: None)
  Receive Date: 20070906
  Receipt Date: 20070825
  Transmission Date: 20080115
  Serious: Yes (Other)
  Sender: FDA-Public Use
  Company Number: US-PFIZER INC-2007071383

PATIENT
  Sex: Female
  Weight: 92.272 kg

DRUGS (7)
  1. LYRICA [Suspect]
     Indication: DIABETIC NEUROPATHY
     Dosage: DAILY DOSE:300MG-FREQ:EVERYDAY
  2. LYRICA [Suspect]
     Indication: NERVE INJURY
  3. VASOTEC [Concomitant]
  4. CADUET [Concomitant]
  5. HUMALOG [Concomitant]
  6. GLUCOPHAGE [Concomitant]
  7. ATENOLOL [Concomitant]

REACTIONS (1)
  - PERIPHERAL NERVE OPERATION [None]
